FAERS Safety Report 16954616 (Version 1)
Quarter: 2019Q4

REPORT INFORMATION
  Report Type: Report from Study
  Country: NL (occurrence: NL)
  Receive Date: 20191024
  Receipt Date: 20191024
  Transmission Date: 20200122
  Serious: Yes (Hospitalization)
  Sender: FDA-Public Use
  Company Number: NL-SUN PHARMACEUTICAL INDUSTRIES LTD-2018RR-160206

PATIENT
  Age: 25 Year
  Sex: Male

DRUGS (3)
  1. GEMCITABINE. [Suspect]
     Active Substance: GEMCITABINE
     Indication: PANCREATIC CARCINOMA
     Dosage: 5 MG, UNK
     Route: 042
     Dates: start: 20171101, end: 20171206
  2. ABRAXANE [Suspect]
     Active Substance: PACLITAXEL
     Indication: PANCREATIC CARCINOMA
     Dosage: 5 MG, UNK
     Route: 042
     Dates: start: 20171101, end: 20171206
  3. LDE225 [Suspect]
     Active Substance: ERISMODEGIB
     Indication: PANCREATIC CARCINOMA
     Dosage: 7 MILLIGRAM
     Route: 048
     Dates: start: 20171101

REACTIONS (1)
  - Abdominal pain [Not Recovered/Not Resolved]

NARRATIVE: CASE EVENT DATE: 20171227
